FAERS Safety Report 4506195-3 (Version None)
Quarter: 2004Q4

REPORT INFORMATION
  Report Type: 
  Country: None (occurrence: None)
  Receive Date: 20041025
  Receipt Date: 20031216
  Transmission Date: 20050328
  Serious: Yes (Other)
  Sender: FDA-Public Use
  Company Number: US-JNJFOC-20030604781

PATIENT
  Age: 74 Year
  Sex: Male
  Weight: 78.9259 kg

DRUGS (6)
  1. REMICADE [Suspect]
     Indication: RHEUMATOID ARTHRITIS
     Dosage: 4 VIALS
  2. FOSAMAX [Suspect]
  3. METHOTREXATE [Concomitant]
  4. ACIPHEN ( ) RABEPRAZOLE SODIUM [Concomitant]
  5. FOLIC ACID [Concomitant]
  6. AVAPRO [Concomitant]

REACTIONS (2)
  - OESOPHAGEAL DISORDER [None]
  - SQUAMOUS CELL CARCINOMA OF SKIN [None]
